FAERS Safety Report 12042356 (Version 7)
Quarter: 2018Q3

REPORT INFORMATION
  Report Type: Report from Study
  Country: US (occurrence: US)
  Receive Date: 20160208
  Receipt Date: 20180926
  Transmission Date: 20181010
  Serious: Yes (Other)
  Sender: FDA-Public Use
  Company Number: US-TAKEDA-2016MPI000600

PATIENT
  Sex: Female
  Weight: 102 kg

DRUGS (2)
  1. REVLIMID [Suspect]
     Active Substance: LENALIDOMIDE
     Indication: PLASMA CELL MYELOMA
     Dosage: UNK
     Route: 065
     Dates: start: 201601
  2. IXAZOMIB [Suspect]
     Active Substance: IXAZOMIB
     Indication: PLASMA CELL MYELOMA
     Dosage: 4 MG, QD
     Route: 048
     Dates: start: 201601

REACTIONS (12)
  - Diarrhoea [Unknown]
  - Exercise tolerance decreased [Unknown]
  - Fatigue [Unknown]
  - Vomiting [Unknown]
  - Weight decreased [Unknown]
  - Fluid retention [Unknown]
  - Cough [Unknown]
  - Nausea [Unknown]
  - Rash [Recovering/Resolving]
  - Oedema peripheral [Unknown]
  - Diabetes mellitus [Unknown]
  - Dyspnoea exertional [Unknown]
